FAERS Safety Report 18649306 (Version 1)
Quarter: 2020Q4

REPORT INFORMATION
  Report Type: Spontaneous
  Country: US (occurrence: US)
  Receive Date: 20201222
  Receipt Date: 20201222
  Transmission Date: 20210114
  Serious: Yes (Other)
  Sender: FDA-Public Use
  Company Number: None

PATIENT
  Age: 78 Year
  Sex: Female
  Weight: 52.62 kg

DRUGS (1)
  1. CLEAN N FRESH INSTANT HAND SANITIZER ANTIBACTERIAL [Suspect]
     Active Substance: ALCOHOL

REACTIONS (4)
  - Product formulation issue [None]
  - Dyspnoea [None]
  - Product odour abnormal [None]
  - Drug ineffective [None]

NARRATIVE: CASE EVENT DATE: 20201217
